FAERS Safety Report 6403063-7 (Version None)
Quarter: 2009Q4

REPORT INFORMATION
  Report Type: 
  Country: None (occurrence: None)
  Receive Date: 20091015
  Receipt Date: 20091015
  Transmission Date: 20100525
  Serious: Yes (Other)
  Sender: FDA-Public Use
  Company Number: None

PATIENT
  Sex: Female
  Weight: 79 kg

DRUGS (1)
  1. LAMOTRIGINE [Suspect]
     Indication: EPILEPSY
     Dosage: 100 MG TABS 2 TABS BID PO
     Route: 048
     Dates: start: 20090901, end: 20091001

REACTIONS (2)
  - CONVULSION [None]
  - POSTICTAL PARALYSIS [None]
